FAERS Safety Report 5160095-7 (Version None)
Quarter: 2006Q4

REPORT INFORMATION
  Report Type: 
  Country: None (occurrence: None)
  Receive Date: 20061129
  Receipt Date: 20061117
  Transmission Date: 20070319
  Serious: Yes (Death)
  Sender: FDA-Public Use
  Company Number: US-ROCHE-472018

PATIENT
  Age: 65 Year
  Sex: Male
  Weight: 120.2 kg

DRUGS (1)
  1. XELODA [Suspect]
     Route: 048

REACTIONS (7)
  - CARDIAC ARREST [None]
  - CARDIAC FAILURE [None]
  - DEHYDRATION [None]
  - DRUG INEFFECTIVE [None]
  - MEDICATION ERROR [None]
  - PAIN [None]
  - POLYDIPSIA [None]
